FAERS Safety Report 8130010-2 (Version None)
Quarter: 2012Q1

REPORT INFORMATION
  Report Type: 
  Country: None (occurrence: None)
  Receive Date: 20120210
  Receipt Date: 20120131
  Transmission Date: 20120608
  Serious: Yes (Hospitalization)
  Sender: FDA-Public Use
  Company Number: HU-ABBOTT-12P-076-0900356-00

PATIENT
  Sex: Male
  Weight: 77 kg

DRUGS (5)
  1. IMURAN [Concomitant]
     Indication: COLITIS ULCERATIVE
     Dates: start: 20070201
  2. HUMIRA [Suspect]
     Indication: COLITIS ULCERATIVE
     Route: 058
     Dates: start: 20091104, end: 20111116
  3. SODIUM PHOSPHATES [Concomitant]
     Dates: start: 20110906, end: 20110906
  4. PENTASA [Concomitant]
     Indication: COLITIS ULCERATIVE
     Dates: start: 20080930
  5. SODIUM PHOSPHATES [Concomitant]
     Indication: BOWEL PREPARATION
     Dates: start: 20100105, end: 20100105

REACTIONS (1)
  - COLONIC STENOSIS [None]
